FAERS Safety Report 9513789 (Version 1)
Quarter: 2013Q3

REPORT INFORMATION
  Report Type: Spontaneous
  Country: US (occurrence: US)
  Receive Date: 20130910
  Receipt Date: 20130910
  Transmission Date: 20140515
  Serious: No
  Sender: FDA-Public Use
  Company Number: US-ASTRAZENECA-2013SE50241

PATIENT
  Sex: Male

DRUGS (1)
  1. SYMBICORT [Suspect]
     Indication: ASTHMA
     Dosage: 80/4.5MCG ONE OR LESS THAN ONE INHALATION PER DAY
     Route: 055

REACTIONS (7)
  - Drug intolerance [Unknown]
  - Circumstance or information capable of leading to medication error [Unknown]
  - Dyspnoea [Unknown]
  - Hyperventilation [Unknown]
  - Hypertension [Unknown]
  - Dizziness [Unknown]
  - Off label use [Unknown]
